FAERS Safety Report 8859898 (Version 1)
Quarter: 2012Q4

REPORT INFORMATION
  Report Type: 
  Country: US (occurrence: US)
  Receive Date: 20121025
  Receipt Date: 20121025
  Transmission Date: 20130627
  Serious: No
  Sender: FDA-Public Use
  Company Number: US-ABBOTT-12P-163-0914194-00

PATIENT
  Sex: Female
  Weight: 63.56 kg

DRUGS (2)
  1. LUPRON DEPOT 3.75 MG [Suspect]
     Indication: ENDOMETRIOSIS
     Dates: start: 20110902, end: 201201
  2. UNKNOWN MEDICATION [Concomitant]
     Indication: ILL-DEFINED DISORDER
     Dates: start: 20110902, end: 201201

REACTIONS (11)
  - Nausea [Recovered/Resolved]
  - Dysmenorrhoea [Recovered/Resolved]
  - Vaginal haemorrhage [Recovered/Resolved]
  - Condition aggravated [Recovered/Resolved]
  - Vaginal haemorrhage [Recovered/Resolved]
  - Muscle spasms [Recovered/Resolved]
  - Vaginal haemorrhage [Recovered/Resolved]
  - Feeling abnormal [Recovered/Resolved]
  - Malaise [Recovered/Resolved]
  - Weight increased [None]
  - Abdominal pain [Recovered/Resolved]
